FAERS Safety Report 20354751 (Version 1)
Quarter: 2022Q1

REPORT INFORMATION
  Report Type: Spontaneous
  Country: US (occurrence: None)
  Receive Date: 20220119
  Receipt Date: 20220119
  Transmission Date: 20220423
  Serious: Yes (Death)
  Sender: FDA-Public Use
  Company Number: None

PATIENT
  Sex: Male

DRUGS (1)
  1. SODIUM PHENYLBUTYRATE [Suspect]
     Active Substance: SODIUM PHENYLBUTYRATE
     Indication: Product used for unknown indication
     Dosage: FREQUENCY : DAILY;?
     Route: 048
     Dates: start: 202109

REACTIONS (1)
  - Death [None]
